FAERS Safety Report 15768176 (Version 1)
Quarter: 2018Q4

REPORT INFORMATION
  Report Type: Report from Study
  Country: US (occurrence: US)
  Receive Date: 20181227
  Receipt Date: 20181227
  Transmission Date: 20190205
  Serious: Yes (Hospitalization, Other)
  Sender: FDA-Public Use
  Company Number: US-GILEAD-2018-0382050

PATIENT
  Age: 60 Year
  Sex: Female

DRUGS (13)
  1. RANITIDINE. [Concomitant]
     Active Substance: RANITIDINE
  2. LISINOPRIL. [Concomitant]
     Active Substance: LISINOPRIL
  3. MORPHINE SULFATE. [Concomitant]
     Active Substance: MORPHINE SULFATE
  4. POTASSIUM CHLORIDE. [Concomitant]
     Active Substance: POTASSIUM CHLORIDE
  5. AMBRISENTAN [Suspect]
     Active Substance: AMBRISENTAN
     Indication: PULMONARY ARTERIAL HYPERTENSION
     Dosage: 10 MG, QD
     Route: 065
     Dates: start: 20180511
  6. DULOXETINE. [Concomitant]
     Active Substance: DULOXETINE
  7. ELIQUIS [Concomitant]
     Active Substance: APIXABAN
  8. LEVOFLOXACIN. [Concomitant]
     Active Substance: LEVOFLOXACIN
  9. METOPROLOL. [Concomitant]
     Active Substance: METOPROLOL
  10. NEXIUM [ESOMEPRAZOLE SODIUM] [Concomitant]
  11. CLONAZEPAM. [Concomitant]
     Active Substance: CLONAZEPAM
  12. LEVOTHYROXIN [Concomitant]
     Active Substance: LEVOTHYROXINE
  13. GABAPENTIN. [Concomitant]
     Active Substance: GABAPENTIN

REACTIONS (1)
  - Cardiac failure congestive [Unknown]
